FAERS Safety Report 5483875-7 (Version None)
Quarter: 2007Q4

REPORT INFORMATION
  Report Type: 
  Country: None (occurrence: None)
  Receive Date: 20071012
  Receipt Date: 20071005
  Transmission Date: 20080405
  Serious: Yes (Other)
  Sender: FDA-Public Use
  Company Number: JP-BRACCO-BRO-012133

PATIENT
  Age: 67 Year
  Sex: Male
  Weight: 53 kg

DRUGS (3)
  1. IOPAMIRON [Suspect]
     Dosage: 3 ML/SEC
     Route: 042
     Dates: start: 20070904, end: 20070904
  2. IOPAMIRON [Suspect]
     Dosage: 3 ML/SEC
     Route: 042
     Dates: start: 20070904, end: 20070904
  3. URSO 250 [Concomitant]
     Route: 050

REACTIONS (4)
  - BLOOD PRESSURE INCREASED [None]
  - CHEST DISCOMFORT [None]
  - PURPURA [None]
  - RENAL IMPAIRMENT [None]
